FAERS Safety Report 5360327-6 (Version None)
Quarter: 2007Q2

REPORT INFORMATION
  Report Type: 
  Country: None (occurrence: None)
  Receive Date: 20070618
  Receipt Date: 20070608
  Transmission Date: 20071010
  Serious: Yes (Hospitalization)
  Sender: FDA-Public Use
  Company Number: FR-AMGEN-UK222797

PATIENT
  Sex: Male

DRUGS (2)
  1. KINERET [Suspect]
     Indication: JUVENILE ARTHRITIS
     Route: 058
     Dates: start: 20060615
  2. CORTICOSTEROIDS [Concomitant]
     Route: 065

REACTIONS (5)
  - COUGH [None]
  - LUNG DISORDER [None]
  - PHARYNGITIS [None]
  - PYREXIA [None]
  - VOMITING [None]
